FAERS Safety Report 22081165 (Version 1)
Quarter: 2023Q1

REPORT INFORMATION
  Report Type: Spontaneous
  Country: US (occurrence: US)
  Receive Date: 20230309
  Receipt Date: 20230309
  Transmission Date: 20230418
  Serious: No
  Sender: FDA-Public Use
  Company Number: US-INCYTE CORPORATION-2023IN002229

PATIENT

DRUGS (1)
  1. JAKAFI [Suspect]
     Active Substance: RUXOLITINIB
     Indication: Gaucher^s disease
     Dosage: 15 MILLIGRAM, BID
     Route: 048
     Dates: start: 20221205

REACTIONS (2)
  - Blood urine present [Unknown]
  - Off label use [Unknown]

NARRATIVE: CASE EVENT DATE: 20221205
